FAERS Safety Report 19824291 (Version 1)
Quarter: 2021Q3

REPORT INFORMATION
  Report Type: Spontaneous
  Country: AU (occurrence: AU)
  Receive Date: 20210913
  Receipt Date: 20210913
  Transmission Date: 20211014
  Serious: Yes (Other)
  Sender: FDA-Public Use
  Company Number: AU-SA-2021SA298035

PATIENT
  Age: 49 Year
  Sex: Female

DRUGS (1)
  1. FEXOFENADINE [Suspect]
     Active Substance: FEXOFENADINE HYDROCHLORIDE
     Dosage: UNK
     Route: 048

REACTIONS (5)
  - Oropharyngeal pain [Unknown]
  - Vomiting [Unknown]
  - Choking [Unknown]
  - Throat irritation [Unknown]
  - Product packaging issue [Unknown]
